FAERS Safety Report 15648184 (Version 1)
Quarter: 2018Q4

REPORT INFORMATION
  Report Type: Spontaneous
  Country: FR (occurrence: FR)
  Receive Date: 20181122
  Receipt Date: 20181122
  Transmission Date: 20190205
  Serious: Yes (Hospitalization)
  Sender: FDA-Public Use
  Company Number: FR-PROVELL PHARMACEUTICALS-2059205

PATIENT
  Age: 43 Year
  Sex: Male

DRUGS (1)
  1. EUTHYROX [Suspect]
     Active Substance: LEVOTHYROXINE SODIUM
     Indication: HYPERTHYROIDISM
     Dates: start: 201703

REACTIONS (12)
  - Dizziness [None]
  - Flushing [None]
  - Hot flush [None]
  - Nausea [None]
  - Diverticulum intestinal [None]
  - Fatigue [None]
  - Asthenia [None]
  - Myalgia [None]
  - Weight increased [None]
  - Depression [None]
  - Hypersomnia [None]
  - Negative thoughts [None]

NARRATIVE: CASE EVENT DATE: 2017
